FAERS Safety Report 7399865-3 (Version None)
Quarter: 2011Q2

REPORT INFORMATION
  Report Type: 
  Country: None (occurrence: None)
  Receive Date: 20110407
  Receipt Date: 20110329
  Transmission Date: 20111010
  Serious: Yes (Death, Other)
  Sender: FDA-Public Use
  Company Number: GB-WATSON-2011-04793

PATIENT
  Age: 81 Year
  Sex: Male

DRUGS (5)
  1. FUSIDIC ACID (SODIUM FUSIDATE) [Concomitant]
     Indication: DIABETIC FOOT
     Dosage: UNK
  2. SIMVASTATIN [Suspect]
     Indication: PRODUCT USED FOR UNKNOWN INDICATION
     Dosage: 40 MG, UNK
     Route: 065
  3. FLOXACILLIN SODIUM [Concomitant]
     Indication: DIABETIC FOOT
  4. FLOXACILLIN SODIUM [Concomitant]
     Indication: OSTEOMYELITIS
  5. FUSIDIC ACID (SODIUM FUSIDATE) [Concomitant]
     Indication: OSTEOMYELITIS

REACTIONS (5)
  - ABASIA [None]
  - RENAL FAILURE ACUTE [None]
  - RHABDOMYOLYSIS [None]
  - BLOOD CREATINE PHOSPHOKINASE INCREASED [None]
  - MALAISE [None]
